FAERS Safety Report 21628848 (Version 2)
Quarter: 2023Q1

REPORT INFORMATION
  Report Type: Spontaneous
  Country: CA (occurrence: CA)
  Receive Date: 20221122
  Receipt Date: 20230320
  Transmission Date: 20230417
  Serious: Yes (Other)
  Sender: FDA-Public Use
  Company Number: CA-JAZZ-2022-CA-035744

PATIENT
  Age: 69 Year
  Sex: Male

DRUGS (1)
  1. VYXEOS [Suspect]
     Active Substance: CYTARABINE\DAUNORUBICIN
     Indication: Product used for unknown indication
     Dosage: UNK

REACTIONS (5)
  - Sepsis [Unknown]
  - Atrial fibrillation [Unknown]
  - Azotaemia [Unknown]
  - Urinary tract infection [Unknown]
  - Drug eruption [Unknown]

NARRATIVE: CASE EVENT DATE: 20210601
